FAERS Safety Report 9300310 (Version 1)
Quarter: 2013Q2

REPORT INFORMATION
  Report Type: Spontaneous
  Country: BR (occurrence: BR)
  Receive Date: 20130521
  Receipt Date: 20130521
  Transmission Date: 20140414
  Serious: Yes (Other)
  Sender: FDA-Public Use
  Company Number: BR-JNJFOC-20130510675

PATIENT
  Age: 50 Year
  Sex: Male
  Weight: 81 kg

DRUGS (2)
  1. REMICADE [Suspect]
     Indication: PSORIATIC ARTHROPATHY
     Route: 042
     Dates: start: 201210
  2. REMICADE [Suspect]
     Indication: PSORIATIC ARTHROPATHY
     Dosage: LAST INFUSION BETWEEN 10-APR-2013 TO 15-APR-2013
     Route: 042
     Dates: start: 201304

REACTIONS (1)
  - Gout [Not Recovered/Not Resolved]
